FAERS Safety Report 5899894-2 (Version None)
Quarter: 2008Q3

REPORT INFORMATION
  Report Type: 
  Country: None (occurrence: None)
  Receive Date: 20080926
  Receipt Date: 20080917
  Transmission Date: 20090109
  Serious: Yes (Hospitalization)
  Sender: FDA-Public Use
  Company Number: JP-ABBOTT-07P-087-0418729-00

PATIENT
  Sex: Male
  Weight: 55 kg

DRUGS (10)
  1. KALETRA [Suspect]
     Indication: HIV INFECTION
     Route: 048
     Dates: start: 20060918, end: 20060921
  2. CLARITHROMYCIN [Suspect]
     Indication: PROPHYLAXIS
     Route: 048
     Dates: start: 20060630, end: 20060725
  3. NORVIR SOFT CAPSULES [Suspect]
     Indication: HIV INFECTION
     Route: 048
     Dates: start: 20060725, end: 20060917
  4. BACTRIM [Suspect]
     Indication: PROPHYLAXIS
     Route: 048
     Dates: start: 20060630, end: 20060725
  5. EMTRICITABINE W/TENOFOVIR [Suspect]
     Indication: HIV INFECTION
     Route: 048
     Dates: start: 20060725, end: 20060803
  6. ATAZANAVIR SULFATE [Suspect]
     Indication: HIV INFECTION
     Route: 048
     Dates: start: 20060725, end: 20060917
  7. ZIDOVUDINE [Suspect]
     Indication: HIV INFECTION
     Route: 048
  8. ABACAVIR [Concomitant]
     Indication: HIV INFECTION
     Route: 048
     Dates: start: 20060804, end: 20060921
  9. ZIDOVUDINE [Concomitant]
     Route: 048
     Dates: start: 20060804, end: 20060917
  10. STAVUDINE [Concomitant]
     Indication: HIV INFECTION
     Route: 048
     Dates: start: 20060804, end: 20060921

REACTIONS (2)
  - ATRIOVENTRICULAR BLOCK COMPLETE [None]
  - RENAL DISORDER [None]
